FAERS Safety Report 19256641 (Version 1)
Quarter: 2021Q2

REPORT INFORMATION
  Report Type: Spontaneous
  Country: IN (occurrence: IN)
  Receive Date: 20210513
  Receipt Date: 20210513
  Transmission Date: 20210717
  Serious: Yes (Other)
  Sender: FDA-Public Use
  Company Number: IN-UCBSA-2021022283

PATIENT

DRUGS (3)
  1. LEVETIRACETAM. [Suspect]
     Active Substance: LEVETIRACETAM
     Indication: PRODUCT USED FOR UNKNOWN INDICATION
     Dosage: UNK
  2. CETIRIZINE HYDROCHLORIDE. [Suspect]
     Active Substance: CETIRIZINE HYDROCHLORIDE
     Indication: PRODUCT USED FOR UNKNOWN INDICATION
     Dosage: UNK
  3. LEVOCETIRIZINE HYDROCHLORIDE [Suspect]
     Active Substance: LEVOCETIRIZINE HYDROCHLORIDE
     Indication: PRODUCT USED FOR UNKNOWN INDICATION
     Dosage: UNK

REACTIONS (13)
  - Anaphylactic reaction [Unknown]
  - Epidermal necrosis [Unknown]
  - Rash [Unknown]
  - Skin hyperpigmentation [Unknown]
  - Dry skin [Unknown]
  - Alopecia [Unknown]
  - Pruritus [Unknown]
  - Rash pruritic [Unknown]
  - Injection site reaction [Unknown]
  - Ichthyosis [Unknown]
  - Urticaria [Unknown]
  - Erythema [Unknown]
  - Drug eruption [Unknown]
